FAERS Safety Report 6748940-2 (Version None)
Quarter: 2010Q2

REPORT INFORMATION
  Report Type: 
  Country: None (occurrence: None)
  Receive Date: 20100601
  Receipt Date: 20100525
  Transmission Date: 20101027
  Serious: Yes (Other)
  Sender: FDA-Public Use
  Company Number: US-BAYER-201023616NA

PATIENT
  Age: 46 Year
  Sex: Female

DRUGS (2)
  1. YASMIN [Suspect]
     Indication: DRUG USE FOR UNKNOWN INDICATION
     Route: 048
     Dates: start: 20061001, end: 20080601
  2. OCELLA [Suspect]
     Indication: DRUG USE FOR UNKNOWN INDICATION
     Dates: start: 20080601, end: 20090101

REACTIONS (2)
  - ABDOMINAL PAIN UPPER [None]
  - GALLBLADDER DISORDER [None]
